FAERS Safety Report 12550766 (Version 2)
Quarter: 2016Q3

REPORT INFORMATION
  Report Type: Spontaneous
  Country: US (occurrence: US)
  Receive Date: 20160712
  Receipt Date: 20160822
  Transmission Date: 20161109
  Serious: No
  Sender: FDA-Public Use
  Company Number: US-ASTRAZENECA-2016SE72945

PATIENT
  Age: 23702 Day
  Sex: Female
  Weight: 40.8 kg

DRUGS (9)
  1. COMBIVENT RESTIMATE INHALER [Concomitant]
     Indication: CHRONIC OBSTRUCTIVE PULMONARY DISEASE
     Dosage: 20MCG  100MCG, EVERY DAY AND TAKES IT EVERY 4 HOURS
     Route: 055
     Dates: start: 2004
  2. ALBUTEROL INHALER [Concomitant]
     Active Substance: ALBUTEROL
     Indication: SUPPLEMENTATION THERAPY
     Dosage: 90, AS REQUIRED
     Route: 055
     Dates: start: 1982
  3. SYMBICORT [Suspect]
     Active Substance: BUDESONIDE\FORMOTEROL FUMARATE DIHYDRATE
     Indication: CHRONIC OBSTRUCTIVE PULMONARY DISEASE
     Dosage: 180/4.5, 2 PUFFS TWICE A DAY
     Route: 055
  4. FLOVENT [Concomitant]
     Active Substance: FLUTICASONE PROPIONATE
     Dosage: 220
     Route: 055
  5. COMBIVENT RESTIMATE INHALER [Concomitant]
     Indication: ASTHMA
     Dosage: 20MCG  100MCG, EVERY DAY AND TAKES IT EVERY 4 HOURS
     Route: 055
     Dates: start: 2004
  6. PREDNISOLONE. [Concomitant]
     Active Substance: PREDNISOLONE
     Indication: ASTHMA
     Dosage: 15MLS FOR 3 DAYS, AS REQUIRED
     Route: 048
     Dates: start: 1982
  7. PREDNISOLONE. [Concomitant]
     Active Substance: PREDNISOLONE
     Indication: PNEUMONITIS
     Dosage: 15MLS FOR 3 DAYS, AS REQUIRED
     Route: 048
     Dates: start: 1982
  8. SYMBICORT [Suspect]
     Active Substance: BUDESONIDE\FORMOTEROL FUMARATE DIHYDRATE
     Indication: ASTHMA
     Dosage: 180/4.5, 2 PUFFS TWICE A DAY
     Route: 055
  9. DULERA [Concomitant]
     Active Substance: FORMOTEROL FUMARATE DIHYDRATE\MOMETASONE FUROATE

REACTIONS (18)
  - Suspected counterfeit product [Unknown]
  - Insomnia [Unknown]
  - Emotional distress [Unknown]
  - Lung disorder [Unknown]
  - Thirst [Unknown]
  - Dehydration [Unknown]
  - Drug ineffective [Unknown]
  - Condition aggravated [Unknown]
  - Immune system disorder [Unknown]
  - Intentional product misuse [Unknown]
  - Counterfeit drug administered [Unknown]
  - Toxicity to various agents [Unknown]
  - Dizziness [Unknown]
  - Visual impairment [Unknown]
  - Rubber sensitivity [Unknown]
  - Device malfunction [Unknown]
  - Malaise [Unknown]
  - Body height decreased [Unknown]

NARRATIVE: CASE EVENT DATE: 20160701
